FAERS Safety Report 9249940 (Version 1)
Quarter: 2013Q2

REPORT INFORMATION
  Report Type: Spontaneous
  Country: GB (occurrence: GB)
  Receive Date: 20130424
  Receipt Date: 20130424
  Transmission Date: 20140414
  Serious: Yes (Other)
  Sender: FDA-Public Use
  Company Number: GB-BRISTOL-MYERS SQUIBB COMPANY-18803338

PATIENT
  Age: 61 Year
  Sex: Male
  Weight: 113.5 kg

DRUGS (6)
  1. BYETTA [Suspect]
     Indication: DIABETES MELLITUS
  2. SIMVASTATIN [Concomitant]
  3. OMEPRAZOLE [Concomitant]
  4. AMLODIPINE [Concomitant]
  5. DOXAZOSIN [Concomitant]
  6. GABAPENTIN [Concomitant]

REACTIONS (5)
  - Dyspnoea [Recovered/Resolved]
  - Local swelling [Recovered/Resolved]
  - Somnolence [Not Recovered/Not Resolved]
  - Lethargy [Not Recovered/Not Resolved]
  - Weight decreased [Not Recovered/Not Resolved]
